FAERS Safety Report 7723331-6 (Version None)
Quarter: 2011Q3

REPORT INFORMATION
  Report Type: 
  Country: None (occurrence: None)
  Receive Date: 20110901
  Receipt Date: 20110901
  Transmission Date: 20111222
  Serious: Yes (Other)
  Sender: FDA-Public Use
  Company Number: None

PATIENT
  Age: 20 Year
  Sex: Female
  Weight: 70.306 kg

DRUGS (1)
  1. SOLODYN [Suspect]
     Indication: ACNE
     Dosage: 1 TABLET
     Route: 048
     Dates: start: 20090311, end: 20101221

REACTIONS (5)
  - DYSPNOEA [None]
  - JOINT STIFFNESS [None]
  - DYSSTASIA [None]
  - VAGINAL INFECTION [None]
  - SYSTEMIC LUPUS ERYTHEMATOSUS [None]
